FAERS Safety Report 10665970 (Version 1)
Quarter: 2014Q4

REPORT INFORMATION
  Report Type: Spontaneous
  Country: DE (occurrence: DE)
  Receive Date: 20141219
  Receipt Date: 20141219
  Transmission Date: 20150529
  Serious: Yes (Hospitalization)
  Sender: FDA-Public Use
  Company Number: GXKR2014DE004712

PATIENT

DRUGS (8)
  1. TAVOR [Interacting]
     Active Substance: LORAZEPAM
     Route: 048
  2. AMOXICILLIN. [Concomitant]
     Active Substance: AMOXICILLIN
  3. RISPERIDONE. [Suspect]
     Active Substance: RISPERIDONE
     Route: 048
  4. ORFIRIL [Interacting]
     Active Substance: VALPROIC ACID
     Dosage: 1200 MG, UNK
     Route: 048
     Dates: start: 20110309
  5. PANTOZOL [Concomitant]
     Active Substance: PANTOPRAZOLE SODIUM
     Route: 048
  6. MELPERONE [Interacting]
     Active Substance: MELPERONE
     Route: 048
  7. AXURA [Concomitant]
     Active Substance: MEMANTINE HYDROCHLORIDE
     Route: 048
  8. ORFIRIL [Interacting]
     Active Substance: VALPROIC ACID
     Dosage: 300-900 MG
     Route: 048
     Dates: start: 20110222, end: 20110308

REACTIONS (3)
  - Sedation [Recovered/Resolved]
  - Somnolence [Recovered/Resolved]
  - Encephalopathy [Recovered/Resolved]

NARRATIVE: CASE EVENT DATE: 20110228
